FAERS Safety Report 8063409-3 (Version None)
Quarter: 2012Q1

REPORT INFORMATION
  Report Type: 
  Country: None (occurrence: None)
  Receive Date: 20120117
  Receipt Date: 20120103
  Transmission Date: 20120608
  Serious: Yes (Death)
  Sender: FDA-Public Use
  Company Number: B0773397A

PATIENT
  Age: 45 Year
  Sex: Female

DRUGS (5)
  1. SALICYLATE (FORMULATION UNKNOWN) (SALICYLATE) [Suspect]
  2. BUPRENORPHINE [Suspect]
  3. ZOLPIDEM [Suspect]
  4. LAMOTRIGINE (FORMULATION UKNOWN) (GENERIC) (LAMOTRIGINE) [Suspect]
     Dosage: ORAL
     Route: 048
  5. NAPROXEN [Suspect]

REACTIONS (1)
  - COMPLETED SUICIDE [None]
